FAERS Safety Report 6071527-4 (Version None)
Quarter: 2009Q1

REPORT INFORMATION
  Report Type: 
  Country: None (occurrence: None)
  Receive Date: 20090209
  Receipt Date: 20090209
  Transmission Date: 20090719
  Serious: Yes (Hospitalization)
  Sender: FDA-Public Use
  Company Number: None

PATIENT
  Sex: Female
  Weight: 69.4 kg

DRUGS (4)
  1. CAMPATH [Suspect]
     Dosage: 696 MG
  2. CYCLOPHOSPHAMIDE [Suspect]
     Dosage: 6250 MG
  3. PENTOSTATIN [Suspect]
     Dosage: 42 MG
  4. RITUXIMAB (MOAB C2B8 ANTI CD20 CHIMERIC) [Suspect]
     Dosage: 4640 MG

REACTIONS (5)
  - CULTURE POSITIVE [None]
  - LEGIONELLA INFECTION [None]
  - LYMPHADENOPATHY [None]
  - OPPORTUNISTIC INFECTION [None]
  - PNEUMONIA [None]
